FAERS Safety Report 12635492 (Version 2)
Quarter: 2016Q4

REPORT INFORMATION
  Report Type: Spontaneous
  Country: US (occurrence: US)
  Receive Date: 20160809
  Receipt Date: 20161026
  Transmission Date: 20170207
  Serious: Yes (Life-Threatening, Hospitalization)
  Sender: FDA-Public Use
  Company Number: US-JNJFOC-20160804106

PATIENT
  Age: 66 Year
  Sex: Male

DRUGS (1)
  1. XARELTO [Suspect]
     Active Substance: RIVAROXABAN
     Indication: PULMONARY EMBOLISM
     Dosage: EVERY POST MERIDIEM (PM)
     Route: 048
     Dates: start: 20140821, end: 20150609

REACTIONS (3)
  - Acute respiratory failure [Unknown]
  - Pulmonary haemorrhage [Recovering/Resolving]
  - Cardiogenic shock [Unknown]

NARRATIVE: CASE EVENT DATE: 20150609
